FAERS Safety Report 4941557-1 (Version None)
Quarter: 2006Q1

REPORT INFORMATION
  Report Type: 
  Country: None (occurrence: None)
  Receive Date: 20060308
  Receipt Date: 20060221
  Transmission Date: 20060701
  Serious: Yes (Other)
  Sender: FDA-Public Use
  Company Number: 2006JP000067

PATIENT
  Age: 55 Year
  Sex: Female
  Weight: 45 kg

DRUGS (6)
  1. TACROLIMUS CAPSULES (TACROLIMUS) CAPSULE [Suspect]
     Indication: RHEUMATOID ARTHRITIS
     Dosage: 3 MG, ORAL
     Route: 048
     Dates: start: 20050525
  2. PREDNISOLONE [Suspect]
     Indication: RHEUMATOID ARTHRITIS
     Dosage: 1 MG, QOD, ORAL
     Route: 048
     Dates: end: 20050719
  3. OSTELUC (ETODOLAC) PER ORAL NOS [Concomitant]
  4. VOLTAREN [Concomitant]
  5. VOLTAREN (DICLOFENAC POTASSIUM) TAPE [Concomitant]
  6. MUCOSTA (REBAMIPIDE) PER ORAL NOS [Concomitant]

REACTIONS (3)
  - B-CELL LYMPHOMA [None]
  - BLOOD GLUCOSE INCREASED [None]
  - LYMPHADENOPATHY [None]
